FAERS Safety Report 9790011 (Version 1)
Quarter: 2013Q4

REPORT INFORMATION
  Report Type: Spontaneous
  Country: US (occurrence: None)
  Receive Date: 20131230
  Receipt Date: 20131230
  Transmission Date: 20140711
  Serious: Yes (Other)
  Sender: FDA-Public Use
  Company Number: None

PATIENT
  Age: 46 Year
  Sex: Female
  Weight: 93.9 kg

DRUGS (1)
  1. FENOFIBRATE [Suspect]
     Indication: BLOOD DISORDER
     Dosage: 1 PILL
     Route: 048
     Dates: start: 20130301, end: 20131228

REACTIONS (4)
  - Dyspnoea [None]
  - Myalgia [None]
  - Tenderness [None]
  - Abdominal pain upper [None]
